FAERS Safety Report 22958034 (Version 2)
Quarter: 2023Q4

REPORT INFORMATION
  Report Type: Spontaneous
  Country: US (occurrence: US)
  Receive Date: 20230919
  Receipt Date: 20231220
  Transmission Date: 20240110
  Serious: No
  Sender: FDA-Public Use
  Company Number: US-PROVENTION BIO, INC.-US-PRAG-23-00064

PATIENT
  Age: 21 Year
  Sex: Male
  Weight: 59.9 kg

DRUGS (5)
  1. TZIELD [Suspect]
     Active Substance: TEPLIZUMAB-MZWV
     Indication: Diabetes prophylaxis
     Dosage: 108 MICROGRAM, 2MG/2ML, SINGLE
     Route: 042
     Dates: start: 20230731, end: 20230731
  2. TZIELD [Suspect]
     Active Substance: TEPLIZUMAB-MZWV
     Dosage: 208 MICROGRAM,2 MG/2ML,  SINGLE
     Route: 042
     Dates: start: 20230801, end: 20230801
  3. TZIELD [Suspect]
     Active Substance: TEPLIZUMAB-MZWV
     Dosage: 415 MICROGRAM,2 MG/2ML,  SINGLE
     Route: 042
     Dates: start: 20230802, end: 20230802
  4. TZIELD [Suspect]
     Active Substance: TEPLIZUMAB-MZWV
     Dosage: 830 MICROGRAM,2 MG/2ML,  SINGLE
     Route: 042
     Dates: start: 20230803, end: 20230803
  5. TZIELD [Suspect]
     Active Substance: TEPLIZUMAB-MZWV
     Dosage: 1708 MICROGRAM,2 MG/2ML,  SINGLE
     Route: 042
     Dates: start: 20230804, end: 20230810

REACTIONS (1)
  - Hepatic enzyme increased [Recovered/Resolved]

NARRATIVE: CASE EVENT DATE: 20230810
